FAERS Safety Report 8772461 (Version 1)
Quarter: 2012Q4

REPORT INFORMATION
  Report Type: 
  Country: US (occurrence: US)
  Receive Date: 20120905
  Receipt Date: 20120905
  Transmission Date: 20130627
  Serious: Yes (Hospitalization)
  Sender: FDA-Public Use
  Company Number: US-VIROPHARMA INCORPORATED-20120828CINRY3312

PATIENT
  Sex: Female

DRUGS (2)
  1. CINRYZE (C1 ESTERASE INHIBITOR (HUMAN)) [Suspect]
     Indication: HEREDITARY ANGIOEDEMA
     Dates: start: 200910, end: 201207
  2. CINRYZE (C1 ESTERASE INHIBITOR (HUMAN)) [Suspect]
     Dates: start: 201207

REACTIONS (4)
  - Colon cancer [Not Recovered/Not Resolved]
  - Gastrointestinal haemorrhage [Not Recovered/Not Resolved]
  - Hereditary angioedema [Recovering/Resolving]
  - Therapy regimen changed [Not Recovered/Not Resolved]
